FAERS Safety Report 5863341-7 (Version None)
Quarter: 2008Q3

REPORT INFORMATION
  Report Type: 
  Country: None (occurrence: None)
  Receive Date: 20080828
  Receipt Date: 20080820
  Transmission Date: 20090109
  Serious: Yes (Other)
  Sender: FDA-Public Use
  Company Number: PHHY2008JP18732

PATIENT

DRUGS (2)
  1. ZOMETA [Suspect]
     Dosage: 4 MG, UNK
     Route: 042
     Dates: start: 20060613, end: 20060822
  2. ZOMETA [Suspect]
     Dosage: 4 MG
     Route: 042
     Dates: start: 20060903

REACTIONS (4)
  - CONDITION AGGRAVATED [None]
  - HICCUPS [None]
  - HYPOCALCAEMIA [None]
  - TETANY [None]
